FAERS Safety Report 9138345 (Version 4)
Quarter: 2014Q4

REPORT INFORMATION
  Report Type: Report from Study
  Country: US (occurrence: US)
  Receive Date: 20130305
  Receipt Date: 20141006
  Transmission Date: 20150529
  Serious: Yes (Hospitalization)
  Sender: FDA-Public Use
  Company Number: US-BIOGENIDEC-2013BI020282

PATIENT
  Age: 55 Year
  Sex: Female

DRUGS (1)
  1. TYSABRI [Suspect]
     Active Substance: NATALIZUMAB
     Indication: MULTIPLE SCLEROSIS
     Route: 042
     Dates: start: 20101130, end: 20130103

REACTIONS (4)
  - Hip surgery [Unknown]
  - Osteonecrosis [Recovered/Resolved]
  - Arthralgia [Unknown]
  - Stress fracture [Recovered/Resolved]

NARRATIVE: CASE EVENT DATE: 2012
